FAERS Safety Report 23576125 (Version 1)
Quarter: 2024Q1

REPORT INFORMATION
  Report Type: Spontaneous
  Country: FR (occurrence: FR)
  Receive Date: 20240228
  Receipt Date: 20240228
  Transmission Date: 20240409
  Serious: Yes (Hospitalization, Other)
  Sender: FDA-Public Use
  Company Number: None

PATIENT
  Age: 31 Year
  Sex: Female

DRUGS (5)
  1. ETHINYL ESTRADIOL\LEVONORGESTREL [Suspect]
     Active Substance: ETHINYL ESTRADIOL\LEVONORGESTREL
     Dosage: 1 DF, DAILY
     Route: 048
  2. ALCOHOL [Suspect]
     Active Substance: ALCOHOL
     Dosage: MASSIVE USE DURING WEEKENDS
     Route: 048
  3. TOBACCO LEAF [Suspect]
     Active Substance: TOBACCO LEAF
     Dosage: 5 PA (POWDER)
     Route: 055
     Dates: end: 2017
  4. COCAINE [Suspect]
     Active Substance: COCAINE
     Dosage: UNK
     Route: 045
  5. COCAINE [Suspect]
     Active Substance: COCAINE
     Dosage: EVERY WEEKENDS
     Route: 045
     Dates: start: 20220601, end: 20220630

REACTIONS (6)
  - Drug abuse [Not Recovered/Not Resolved]
  - Transient ischaemic attack [Recovered/Resolved]
  - Hypoaesthesia [Recovered/Resolved]
  - Hypoaesthesia [Recovered/Resolved]
  - Myoclonus [Recovered/Resolved]
  - Malaise [Recovered/Resolved]

NARRATIVE: CASE EVENT DATE: 20220701
